FAERS Safety Report 8110566-6 (Version None)
Quarter: 2012Q1

REPORT INFORMATION
  Report Type: 
  Country: None (occurrence: None)
  Receive Date: 20120203
  Receipt Date: 20120130
  Transmission Date: 20120608
  Serious: No
  Sender: FDA-Public Use
  Company Number: US-PFIZER INC-2012025352

PATIENT
  Sex: Female

DRUGS (6)
  1. CYMBALTA [Concomitant]
     Dosage: UNK
  2. CELEBREX [Suspect]
     Indication: ARTHRALGIA
     Dosage: UNK
     Route: 048
  3. OMEPRAZOLE [Concomitant]
     Dosage: UNK
  4. LYRICA [Suspect]
     Indication: PAIN
     Dosage: 75 MG, UNK
     Route: 048
  5. LYRICA [Suspect]
     Dosage: 150 MG, UNK
     Route: 048
     Dates: end: 20120127
  6. PRAVASTATIN [Concomitant]
     Dosage: UNK

REACTIONS (2)
  - MALAISE [None]
  - WITHDRAWAL SYNDROME [None]
